FAERS Safety Report 4603630-7 (Version None)
Quarter: 2005Q1

REPORT INFORMATION
  Report Type: 
  Country: None (occurrence: None)
  Receive Date: 20050310
  Receipt Date: 19990504
  Transmission Date: 20050727
  Serious: Yes (Death, Hospitalization)
  Sender: FDA-Public Use
  Company Number: CRAD001/B201/0/66/8/2/I

PATIENT
  Age: 51 Year
  Sex: Male
  Weight: 71 kg

DRUGS (3)
  1. RAD001 [Suspect]
     Indication: RENAL TRANSPLANT
     Dosage: 3 MG, BID
     Route: 048
     Dates: end: 20040929
  2. NEORAL [Suspect]
     Indication: RENAL TRANSPLANT
     Dosage: 270 MG
     Route: 048
     Dates: start: 19990322
  3. RAD001 OR MYCOPHENOLATE MOFETIL [Suspect]
     Indication: RENAL TRANSPLANT
     Dosage: CODE NOT BROKEN
     Route: 048
     Dates: start: 19990324

REACTIONS (7)
  - DISEASE PROGRESSION [None]
  - HEART TRANSPLANT [None]
  - LUNG INFECTION [None]
  - PANCREATITIS [None]
  - PNEUMONIA [None]
  - PYREXIA [None]
  - SEPSIS [None]
